FAERS Safety Report 6367987-1 (Version None)
Quarter: 2009Q3

REPORT INFORMATION
  Report Type: 
  Country: None (occurrence: None)
  Receive Date: 20090922
  Receipt Date: 20090915
  Transmission Date: 20100115
  Serious: Yes (Other)
  Sender: FDA-Public Use
  Company Number: US-JNJFOC-20090905006

PATIENT
  Sex: Female

DRUGS (1)
  1. CLADRIBINE [Suspect]
     Indication: WALDENSTROM'S MACROGLOBULINAEMIA
     Route: 065
     Dates: start: 20080101

REACTIONS (1)
  - PROGRESSIVE MULTIFOCAL LEUKOENCEPHALOPATHY [None]
